FAERS Safety Report 7129492-4 (Version None)
Quarter: 2010Q4

REPORT INFORMATION
  Report Type: 
  Country: None (occurrence: None)
  Receive Date: 20101130
  Receipt Date: 20101116
  Transmission Date: 20110411
  Serious: Yes (Other)
  Sender: FDA-Public Use
  Company Number: NL-MYLANLABS-2010S1021347

PATIENT
  Sex: Male

DRUGS (5)
  1. PRAVASTATIN [Suspect]
     Route: 065
  2. TOLBUTAMIDE [Concomitant]
     Route: 065
  3. METFORMIN [Concomitant]
     Route: 065
  4. ASPIRIN [Concomitant]
     Route: 065
  5. TEMAZEPAM [Concomitant]
     Route: 065

REACTIONS (2)
  - TENDON RUPTURE [None]
  - TENDONITIS [None]
